FAERS Safety Report 12018424 (Version 1)
Quarter: 2016Q1

REPORT INFORMATION
  Report Type: Report from Study
  Country: US (occurrence: US)
  Receive Date: 20160205
  Receipt Date: 20160205
  Transmission Date: 20160526
  Serious: No
  Sender: FDA-Public Use
  Company Number: US-ABBVIE-15K-163-1459020-00

PATIENT
  Age: 42 Year
  Sex: Female
  Weight: 54.93 kg

DRUGS (4)
  1. HUMIRA [Suspect]
     Active Substance: ADALIMUMAB
     Dosage: TWO WEEKS AFTER 160MG DOSE
     Route: 058
     Dates: start: 2015, end: 2015
  2. HUMIRA [Suspect]
     Active Substance: ADALIMUMAB
     Dosage: TWO WEEKS AFTER 80MG DOSE
     Route: 058
     Dates: start: 2015
  3. HUMIRA [Suspect]
     Active Substance: ADALIMUMAB
     Indication: CROHN^S DISEASE
     Route: 058
     Dates: start: 201501, end: 201501
  4. AMOXICILLIN. [Suspect]
     Active Substance: AMOXICILLIN
     Indication: GINGIVITIS
     Route: 065
     Dates: start: 20150817, end: 20150903

REACTIONS (8)
  - Urticaria [Not Recovered/Not Resolved]
  - Gingivitis [Recovering/Resolving]
  - Rash erythematous [Not Recovered/Not Resolved]
  - Dental caries [Recovering/Resolving]
  - Pruritus [Not Recovered/Not Resolved]
  - Drug hypersensitivity [Not Recovered/Not Resolved]
  - Tooth fracture [Recovering/Resolving]
  - Gingival injury [Recovering/Resolving]

NARRATIVE: CASE EVENT DATE: 201508
